FAERS Safety Report 5798425-5 (Version None)
Quarter: 2008Q3

REPORT INFORMATION
  Report Type: 
  Country: None (occurrence: None)
  Receive Date: 20080702
  Receipt Date: 20080624
  Transmission Date: 20090109
  Serious: Yes (Hospitalization)
  Sender: FDA-Public Use
  Company Number: US-KINGPHARMUSA00001-K200800739

PATIENT

DRUGS (6)
  1. ALTACE [Suspect]
     Dosage: 30 MG, SINGLE
     Route: 048
     Dates: start: 20071101, end: 20071101
  2. ALLOPURINOL [Concomitant]
     Indication: GOUT
     Route: 048
  3. XATRAL                             /00975301/ [Concomitant]
     Indication: BENIGN PROSTATIC HYPERPLASIA
     Route: 048
  4. HEPTAMINOL HYDROCHLORIDE [Concomitant]
     Indication: ORTHOSTATIC HYPOTENSION
     Route: 048
  5. ASPIRIN [Concomitant]
     Indication: PAIN
     Route: 048
  6. AUGMENTIN                          /00852501/ [Concomitant]
     Indication: LUNG DISORDER
     Dosage: UNK, UNK
     Route: 048
     Dates: start: 20071107, end: 20071109

REACTIONS (3)
  - ACCIDENTAL OVERDOSE [None]
  - DRUG DISPENSING ERROR [None]
  - HYPOTENSION [None]
